FAERS Safety Report 15556575 (Version 5)
Quarter: 2018Q4

REPORT INFORMATION
  Report Type: Spontaneous
  Country: US (occurrence: US)
  Receive Date: 20181026
  Receipt Date: 20181206
  Transmission Date: 20190205
  Serious: Yes (Life-Threatening, Hospitalization, Other)
  Sender: FDA-Public Use
  Company Number: US-AMGEN-USASP2018150648

PATIENT
  Age: 18 Year
  Sex: Female
  Weight: 53.52 kg

DRUGS (5)
  1. LEXAPRO [Concomitant]
     Active Substance: ESCITALOPRAM OXALATE
     Indication: PRODUCT USED FOR UNKNOWN INDICATION
     Dosage: UNK
  2. AIMOVIG [Suspect]
     Active Substance: ERENUMAB-AOOE
     Dosage: 140 MG, QMO (RECEIVED FROM SURECLICK AND PRE-FILLED SYRINGE)
     Route: 058
  3. ZOMIG [Concomitant]
     Active Substance: ZOLMITRIPTAN
     Indication: MIGRAINE
     Dosage: UNK
  4. AIMOVIG [Suspect]
     Active Substance: ERENUMAB-AOOE
     Indication: MIGRAINE
     Dosage: 140 MG, QMO (RECEIVED FROM SURECLICK AND PRE-FILLED SYRINGE)
     Route: 058
     Dates: start: 20181023
  5. AMITRIPTYLLINE [Concomitant]
     Active Substance: AMITRIPTYLINE
     Indication: SLEEP DISORDER
     Dosage: UNK

REACTIONS (6)
  - Nausea [Recovering/Resolving]
  - Ill-defined disorder [Recovering/Resolving]
  - Vomiting [Recovering/Resolving]
  - Syncope [Recovered/Resolved]
  - Anxiety [Recovering/Resolving]
  - Adverse drug reaction [Recovering/Resolving]

NARRATIVE: CASE EVENT DATE: 201810
